FAERS Safety Report 17529655 (Version 1)
Quarter: 2020Q1

REPORT INFORMATION
  Report Type: Report from Study
  Country: None (occurrence: US)
  Receive Date: 20200312
  Receipt Date: 20200312
  Transmission Date: 20200409
  Serious: Yes (Hospitalization)
  Sender: FDA-Public Use
  Company Number: US-ABBVIE-20K-163-3309522-00

PATIENT
  Age: 42 Year
  Sex: Male

DRUGS (1)
  1. HUMIRA [Suspect]
     Active Substance: ADALIMUMAB
     Indication: RHEUMATOID ARTHRITIS
     Dosage: CF PEN
     Route: 058

REACTIONS (9)
  - Intensive care [Unknown]
  - Gait inability [Not Recovered/Not Resolved]
  - Bedridden [Not Recovered/Not Resolved]
  - Hepatic enzyme abnormal [Unknown]
  - Pain in extremity [Unknown]
  - Hypoaesthesia [Unknown]
  - Muscular weakness [Not Recovered/Not Resolved]
  - Fall [Unknown]
  - Paraesthesia [Unknown]

NARRATIVE: CASE EVENT DATE: 201912
